FAERS Safety Report 12519392 (Version 1)
Quarter: 2016Q2

REPORT INFORMATION
  Report Type: Spontaneous
  Country: AT (occurrence: AT)
  Receive Date: 20160630
  Receipt Date: 20160630
  Transmission Date: 20160815
  Serious: Yes (Life-Threatening, Hospitalization)
  Sender: FDA-Public Use
  Company Number: AT-JNJFOC-20160623996

PATIENT
  Age: 113 Year
  Sex: Female
  Weight: 59 kg

DRUGS (13)
  1. RISPERDAL [Suspect]
     Active Substance: RISPERIDONE
     Indication: PRODUCT USED FOR UNKNOWN INDICATION
     Route: 048
     Dates: start: 20160517, end: 20160523
  2. KEMADRIN [Concomitant]
     Active Substance: PROCYCLIDINE HYDROCHLORIDE
     Route: 065
     Dates: start: 20160517, end: 20160522
  3. SPASMOLYT [Concomitant]
     Route: 065
     Dates: start: 20160517, end: 20160522
  4. DUROTIV [Suspect]
     Active Substance: ESOMEPRAZOLE
     Indication: PRODUCT USED FOR UNKNOWN INDICATION
     Route: 065
     Dates: start: 20160517, end: 20160525
  5. TEMESTA [Concomitant]
     Active Substance: LORAZEPAM
     Route: 065
     Dates: start: 20160519, end: 20160523
  6. URIVESC [Concomitant]
     Active Substance: TROSPIUM CHLORIDE
     Route: 065
     Dates: start: 20160517, end: 20160522
  7. LEPONEX [Suspect]
     Active Substance: CLOZAPINE
     Indication: PRODUCT USED FOR UNKNOWN INDICATION
     Route: 065
     Dates: start: 20160517, end: 20160525
  8. DEPAKINE [Suspect]
     Active Substance: VALPROATE SODIUM
     Indication: PRODUCT USED FOR UNKNOWN INDICATION
     Route: 065
     Dates: start: 20160517, end: 20160525
  9. TEMESTA [Concomitant]
     Active Substance: LORAZEPAM
     Dosage: ONE AND HALF A DAY
     Route: 065
     Dates: start: 20160524, end: 20160525
  10. TEMESTA [Concomitant]
     Active Substance: LORAZEPAM
     Route: 065
     Dates: start: 20160517, end: 20160518
  11. RISPERDAL CONSTA [Suspect]
     Active Substance: RISPERIDONE
     Indication: PRODUCT USED FOR UNKNOWN INDICATION
     Route: 030
     Dates: start: 20160509
  12. MAGNOSOLV [Concomitant]
     Route: 065
     Dates: start: 20160517, end: 20160525
  13. THYREX [Concomitant]
     Active Substance: LEVOTHYROXINE SODIUM
     Dosage: HALF A DAY
     Route: 065
     Dates: start: 20160517, end: 20160525

REACTIONS (2)
  - Hyponatraemia [Recovered/Resolved]
  - Extrapyramidal disorder [Recovered/Resolved]

NARRATIVE: CASE EVENT DATE: 20160517
